FAERS Safety Report 8112644-4 (Version None)
Quarter: 2012Q1

REPORT INFORMATION
  Report Type: 
  Country: None (occurrence: None)
  Receive Date: 20120203
  Receipt Date: 20120119
  Transmission Date: 20120608
  Serious: Yes (Other)
  Sender: FDA-Public Use
  Company Number: US-ROCHE-1031241

PATIENT
  Sex: Female

DRUGS (3)
  1. HERCEPTIN [Suspect]
     Indication: BREAST CANCER
     Dosage: LOADING DOSE
  2. HERCEPTIN [Suspect]
     Dosage: MAINTANANCE DOSE
  3. ANTHRACYCLINE NOS [Suspect]
     Indication: BREAST CANCER

REACTIONS (5)
  - ARRHYTHMIA [None]
  - MYOCARDIAL ISCHAEMIA [None]
  - CARDIAC FAILURE CONGESTIVE [None]
  - CARDIOMYOPATHY [None]
  - CONDUCTION DISORDER [None]
